FAERS Safety Report 18191109 (Version 1)
Quarter: 2020Q3

REPORT INFORMATION
  Report Type: Spontaneous
  Country: IT (occurrence: IT)
  Receive Date: 20200824
  Receipt Date: 20200824
  Transmission Date: 20201103
  Serious: Yes (Hospitalization)
  Sender: FDA-Public Use
  Company Number: IT-ANIPHARMA-2020-IT-000150

PATIENT
  Age: 81 Year
  Sex: Female
  Weight: 35 kg

DRUGS (1)
  1. LITHIUM CARBONATE (NON?SPECIFIC) [Suspect]
     Active Substance: LITHIUM
     Indication: BIPOLAR DISORDER
     Dosage: 450 MG DAILY

REACTIONS (2)
  - Hypertrophic cardiomyopathy [Unknown]
  - Nephrogenic diabetes insipidus [Unknown]
